FAERS Safety Report 10709965 (Version 2)
Quarter: 2017Q3

REPORT INFORMATION
  Report Type: Spontaneous
  Country: US (occurrence: US)
  Receive Date: 20150114
  Receipt Date: 20170713
  Transmission Date: 20171127
  Serious: No
  Sender: FDA-Public Use
  Company Number: US-PFIZER INC-2015010734

PATIENT
  Age: 67 Year
  Sex: Female
  Weight: 58.96 kg

DRUGS (24)
  1. IMITREX [Concomitant]
     Active Substance: SUMATRIPTAN SUCCINATE
     Dosage: 100 MG, UNK
     Route: 048
  2. TRAZODONE HYDROCHLORIDE. [Concomitant]
     Active Substance: TRAZODONE HYDROCHLORIDE
     Indication: DEPRESSION
     Dosage: 100 MG, 2X/DAY
     Route: 048
  3. FERROUS SULFATE. [Concomitant]
     Active Substance: FERROUS SULFATE
     Dosage: 324 MG, 2X/DAY
     Route: 048
  4. HYDROCORTISONE. [Concomitant]
     Active Substance: HYDROCORTISONE
     Dosage: TWICE DAILY, AS NEEDED
  5. LISINOPRIL. [Concomitant]
     Active Substance: LISINOPRIL
     Indication: BLOOD PRESSURE ABNORMAL
     Dosage: UNK, 1X/DAY (10MG, ONE HALF TO ONE)
  6. BACTRIM DS [Concomitant]
     Active Substance: SULFAMETHOXAZOLE\TRIMETHOPRIM
     Dosage: UNK, 1X/DAY
     Route: 048
  7. BIAXIN [Concomitant]
     Active Substance: CLARITHROMYCIN
     Indication: IMMUNE SYSTEM DISORDER
     Dosage: 500 MG, 1X/DAY
     Route: 048
  8. GUAIFENESIN-CODEINE [Concomitant]
     Indication: COUGH
     Dosage: UNK, DAILY
  9. CELEXA [Concomitant]
     Active Substance: CITALOPRAM HYDROBROMIDE
     Dosage: 40 MG, DAILY
     Route: 048
  10. CLOTRIMAZOLE. [Concomitant]
     Active Substance: CLOTRIMAZOLE
     Dosage: UNK, AS NEEDED
  11. LIDODERM [Concomitant]
     Active Substance: LIDOCAINE
     Dosage: UNK, 3X/DAY
  12. CEFPROZIL. [Concomitant]
     Active Substance: CEFPROZIL
     Indication: IMMUNE SYSTEM DISORDER
     Dosage: 500 MG, 1X/DAY
     Route: 048
  13. LYRICA [Suspect]
     Active Substance: PREGABALIN
     Indication: PAIN
     Dosage: 100 MG, 3X/DAY
     Route: 048
  14. CALCIUM [Concomitant]
     Active Substance: CALCIUM
     Dosage: UNK
  15. METHADONE [Concomitant]
     Active Substance: METHADONE HYDROCHLORIDE
     Dosage: 90 MG, 1X/DAY
  16. FLONASE/ACT [Concomitant]
     Dosage: TWO SPRAYS/NOSTRIL, DAILY
  17. GUAIFENESIN-CODEINE [Concomitant]
     Indication: NASAL CONGESTION
  18. TRICOR [Concomitant]
     Active Substance: FENOFIBRATE
     Dosage: 145 MG, MONTHLY
     Route: 048
  19. AMBIEN [Concomitant]
     Active Substance: ZOLPIDEM TARTRATE
     Indication: SLEEP DISORDER
     Dosage: 10 MG, 1X/DAY
  20. DEPAKOTE [Concomitant]
     Active Substance: DIVALPROEX SODIUM
     Dosage: 500 MG, 2X/DAY
     Route: 048
  21. EZOL [Concomitant]
     Indication: HEADACHE
     Dosage: 1 DF, TWICE DAILY, AS NEEDED
     Route: 048
  22. GAMMAGARD [Concomitant]
     Active Substance: HUMAN IMMUNOGLOBULIN G
     Dosage: 8.5 G, WEEKLY (28G MONTHLY)
     Route: 058
  23. COLYTE [Concomitant]
     Active Substance: POLYETHYLENE GLYCOL 3350\POTASSIUM CHLORIDE\SODIUM BICARBONATE\SODIUM CHLORIDE\SODIUM SULFATE ANHYDROUS
     Dosage: 240 G, UNK
  24. LEVAQUIN [Concomitant]
     Active Substance: LEVOFLOXACIN
     Dosage: 500 MG, 1X/DAY
     Route: 048

REACTIONS (3)
  - Rash [Unknown]
  - Nausea [Unknown]
  - Muscle spasms [Unknown]
